FAERS Safety Report 9634270 (Version 1)
Quarter: 2013Q4

REPORT INFORMATION
  Report Type: Spontaneous
  Country: GB (occurrence: None)
  Receive Date: 20131017
  Receipt Date: 20131017
  Transmission Date: 20140711
  Serious: Yes (Other)
  Sender: FDA-Public Use
  Company Number: AUR-APL-2013-08370

PATIENT
  Age: 49 Year
  Sex: Female

DRUGS (3)
  1. RIBAVIRIN (RIBAVIRIN) [Suspect]
     Indication: HEPATITIS C
     Route: 048
     Dates: start: 20130101
  2. PEGINTERFERON ALFA-2B [Suspect]
     Indication: HEPATITIS C
     Route: 058
     Dates: start: 20130101
  3. INCIVO (TELAPREVIR) [Concomitant]
     Indication: HEPATITIS C
     Route: 048
     Dates: start: 20130101

REACTIONS (4)
  - Depression [None]
  - Insomnia [None]
  - Oral disorder [None]
  - Vomiting [None]
